FAERS Safety Report 14203383 (Version 1)
Quarter: 2017Q4

REPORT INFORMATION
  Report Type: Spontaneous
  Country: CN (occurrence: CN)
  Receive Date: 20171120
  Receipt Date: 20171120
  Transmission Date: 20180321
  Serious: Yes (Hospitalization)
  Sender: FDA-Public Use
  Company Number: CN-ACCORD-061119

PATIENT
  Age: 72 Year
  Sex: Male
  Weight: 80 kg

DRUGS (8)
  1. SUFENTANIL [Concomitant]
     Active Substance: SUFENTANIL
     Indication: GENERAL ANAESTHESIA
  2. DEXMEDETOMIDINE. [Suspect]
     Active Substance: DEXMEDETOMIDINE
     Indication: PRODUCT USED FOR UNKNOWN INDICATION
     Dosage: FOR 10 MIN AS A LOADING DOSE
  3. MIDAZOLAM [Concomitant]
     Active Substance: MIDAZOLAM HYDROCHLORIDE
     Dosage: PREMEDICATED
  4. REMIFENTANIL/REMIFENTANIL HYDROCHLORIDE [Concomitant]
     Indication: GENERAL ANAESTHESIA
  5. ETOMIDATE/ETOMIDATE HYDROCHLORIDE/ETOMIDATE SULFATE [Concomitant]
     Indication: GENERAL ANAESTHESIA
  6. SEVOFLURANE. [Concomitant]
     Active Substance: SEVOFLURANE
     Indication: GENERAL ANAESTHESIA
  7. CISATRACURIUM/CISATRACURIUM BESILATE [Concomitant]
     Indication: GENERAL ANAESTHESIA
  8. ROPIVACAINE [Concomitant]
     Active Substance: ROPIVACAINE
     Dosage: 0.4% ROPIVACAINE 40 ML

REACTIONS (2)
  - Hypotension [Recovered/Resolved]
  - Polyuria [Recovered/Resolved]
